FAERS Safety Report 8499450-6 (Version None)
Quarter: 2012Q3

REPORT INFORMATION
  Report Type: 
  Country: None (occurrence: None)
  Receive Date: 20120710
  Receipt Date: 20120702
  Transmission Date: 20120928
  Serious: Yes (Other)
  Sender: FDA-Public Use
  Company Number: US-JNJFOC-20120701485

PATIENT
  Sex: Female
  Weight: 23.59 kg

DRUGS (2)
  1. INTUNIV [Suspect]
     Indication: ATTENTION DEFICIT/HYPERACTIVITY DISORDER
     Route: 048
     Dates: start: 20110101
  2. CONCERTA [Suspect]
     Indication: ATTENTION DEFICIT/HYPERACTIVITY DISORDER
     Dosage: 36 MG TABLET
     Route: 048

REACTIONS (5)
  - DISTRACTIBILITY [None]
  - PRODUCT PACKAGING ISSUE [None]
  - WEIGHT INCREASED [None]
  - IMPULSIVE BEHAVIOUR [None]
  - GROWTH ACCELERATED [None]
